FAERS Safety Report 9645280 (Version 1)
Quarter: 2013Q4

REPORT INFORMATION
  Report Type: Spontaneous
  Country: ES (occurrence: ES)
  Receive Date: 20131025
  Receipt Date: 20131025
  Transmission Date: 20140711
  Serious: Yes (Life-Threatening, Hospitalization)
  Sender: FDA-Public Use
  Company Number: PHHY2013ES120310

PATIENT
  Age: 80 Year
  Sex: Male

DRUGS (6)
  1. VOLTAREN [Suspect]
     Indication: PAIN
     Dosage: 50 MG, TID
     Route: 048
     Dates: start: 20120911, end: 20120916
  2. DEPAKIN [Suspect]
     Indication: PROPHYLAXIS
     Dosage: 1 G, QD
     Route: 048
     Dates: start: 201209, end: 20120916
  3. GABAPENTIN [Suspect]
     Indication: PAIN
     Dosage: 600 MG, QD
     Route: 048
     Dates: start: 201206, end: 20120916
  4. ADOLONTA [Suspect]
     Indication: PAIN
     Dosage: 100 MG, QD
     Route: 048
     Dates: start: 20120911, end: 20120916
  5. HEMOVAS [Concomitant]
     Indication: INTERMITTENT CLAUDICATION
     Dosage: 1200 G, QD
     Route: 048
     Dates: start: 201203
  6. PLAVIX [Concomitant]
     Indication: PROPHYLAXIS
     Dosage: 75 MG, QD
     Route: 048
     Dates: start: 201202

REACTIONS (3)
  - Renal failure acute [Recovered/Resolved]
  - Confusional state [Recovered/Resolved]
  - Hyperkalaemia [Recovered/Resolved]
